FAERS Safety Report 9472760 (Version 10)
Quarter: 2014Q2

REPORT INFORMATION
  Report Type: Spontaneous
  Country: US (occurrence: US)
  Receive Date: 20130823
  Receipt Date: 20140520
  Transmission Date: 20141212
  Serious: Yes (Hospitalization)
  Sender: FDA-Public Use
  Company Number: US-PFIZER INC-2013242571

PATIENT
  Age: 61 Year
  Sex: Female

DRUGS (7)
  1. SUTENT [Suspect]
     Dosage: 37.5 MG, DAILY, 4 WEEKS ON AND 2 WEEKS OFF
     Dates: start: 20120910, end: 201302
  2. SUTENT [Suspect]
     Dosage: UNK
     Dates: start: 20130401
  3. BENAZEPRIL [Concomitant]
     Dosage: UNK
  4. METOPROLOL [Concomitant]
     Dosage: UNK
  5. AMLODIPINE [Concomitant]
     Dosage: UNK
  6. OMEPRAZOLE [Concomitant]
     Dosage: UNK
  7. SIMVASTATIN [Concomitant]
     Dosage: UNK

REACTIONS (12)
  - Asthenia [Unknown]
  - Hypokinesia [Unknown]
  - Diarrhoea [Not Recovered/Not Resolved]
  - Fatigue [Not Recovered/Not Resolved]
  - Stomatitis [Unknown]
  - Balance disorder [Not Recovered/Not Resolved]
  - Dizziness [Unknown]
  - Nausea [Not Recovered/Not Resolved]
  - Blood potassium decreased [Unknown]
  - Blood magnesium decreased [Unknown]
  - Dehydration [Unknown]
  - Peripheral swelling [Unknown]
